FAERS Safety Report 7298865-1 (Version None)
Quarter: 2011Q1

REPORT INFORMATION
  Report Type: 
  Country: None (occurrence: None)
  Receive Date: 20110209
  Receipt Date: 20110125
  Transmission Date: 20110831
  Serious: Yes (Hospitalization)
  Sender: FDA-Public Use
  Company Number: 010284

PATIENT
  Sex: Female

DRUGS (12)
  1. BISOPROLOL FUMARATE [Concomitant]
  2. FOLIC ACID [Concomitant]
  3. AMLODIPINE BESILATE [Concomitant]
  4. ASPIRIN [Concomitant]
  5. MEDROL [Concomitant]
  6. METHOTREXATE [Concomitant]
  7. LOXOPROFEN SODIUM [Concomitant]
  8. EZETIMIBE [Concomitant]
  9. CERTOLIZUMAB PEGOL (CERTOLIZUMAB PEGOL) [Suspect]
     Indication: RHEUMATOID ARTHRITIS
     Dosage: (SUBCUTANEOUS)
     Route: 058
     Dates: start: 20091228, end: 20100421
  10. EPINASTINE HYDROCHLORIDE [Concomitant]
  11. KETOPROFEN [Concomitant]
  12. OLMESARTAN MEDOXOMIL [Concomitant]

REACTIONS (15)
  - ASTHENIA [None]
  - POSTERIOR REVERSIBLE ENCEPHALOPATHY SYNDROME [None]
  - HYPOAESTHESIA [None]
  - INFECTION [None]
  - TRANSIENT ISCHAEMIC ATTACK [None]
  - BRAIN OEDEMA [None]
  - UNEVALUABLE EVENT [None]
  - RHEUMATOID ARTHRITIS [None]
  - POST PROCEDURAL COMPLICATION [None]
  - MENINGITIS NONINFECTIVE [None]
  - MENINGITIS VIRAL [None]
  - HYPOAESTHESIA ORAL [None]
  - SENSORY DISTURBANCE [None]
  - VASCULITIS [None]
  - CONDITION AGGRAVATED [None]
